FAERS Safety Report 4978966-0 (Version None)
Quarter: 2006Q2

REPORT INFORMATION
  Report Type: 
  Country: None (occurrence: None)
  Receive Date: 20060419
  Receipt Date: 20060419
  Transmission Date: 20061013
  Serious: Yes (Hospitalization)
  Sender: FDA-Public Use
  Company Number: None

PATIENT
  Sex: Male

DRUGS (1)
  1. BACTRIM [Suspect]
     Indication: FOLLICULITIS
     Dates: start: 20060315, end: 20060315

REACTIONS (7)
  - BLOOD GLUCOSE INCREASED [None]
  - HEADACHE [None]
  - MENINGITIS ASEPTIC [None]
  - NAUSEA [None]
  - PROTEIN TOTAL INCREASED [None]
  - PYREXIA [None]
  - VOMITING [None]
